FAERS Safety Report 19207070 (Version 1)
Quarter: 2021Q2

REPORT INFORMATION
  Report Type: Report from Study
  Country: US (occurrence: US)
  Receive Date: 20210503
  Receipt Date: 20210503
  Transmission Date: 20210717
  Serious: Yes (Other)
  Sender: FDA-Public Use
  Company Number: US-SUN PHARMACEUTICAL INDUSTRIES LTD-2021R1-294126

PATIENT
  Sex: Male

DRUGS (1)
  1. ANASTROZOLE. [Suspect]
     Active Substance: ANASTROZOLE
     Indication: ANDROGEN DEFICIENCY
     Dosage: 1 MILLIGRAM, DAILY
     Route: 065

REACTIONS (6)
  - Irritability [Unknown]
  - Depression [Unknown]
  - Libido decreased [Unknown]
  - Breast tenderness [Unknown]
  - Dry mouth [Unknown]
  - Eye pain [Unknown]
